FAERS Safety Report 19971670 (Version 1)
Quarter: 2021Q4

REPORT INFORMATION
  Report Type: Spontaneous
  Country: CN (occurrence: CN)
  Receive Date: 20211019
  Receipt Date: 20211019
  Transmission Date: 20220304
  Serious: Yes (Hospitalization, Other)
  Sender: FDA-Public Use
  Company Number: CN-NOVARTISPH-NVSC2021CN235555

PATIENT
  Age: 66 Year
  Sex: Female
  Weight: 51 kg

DRUGS (9)
  1. DICLOFENAC SODIUM [Suspect]
     Active Substance: DICLOFENAC SODIUM
     Indication: Arthralgia
     Dosage: 75 MG, QD
     Route: 048
     Dates: start: 20211005, end: 20211009
  2. LEVOFLOXACIN [Suspect]
     Active Substance: LEVOFLOXACIN
     Indication: Infection
     Dosage: 500 MG, QD
     Route: 048
     Dates: start: 20211001, end: 20211009
  3. IBUPROFEN [Concomitant]
     Active Substance: IBUPROFEN
     Indication: Arthralgia
     Dosage: 300 MG, QD
     Route: 048
     Dates: start: 20211001, end: 20211004
  4. METFORMIN HYDROCHLORIDE [Concomitant]
     Active Substance: METFORMIN HYDROCHLORIDE
     Indication: Diabetes mellitus
     Dosage: 500 MG, BID
     Route: 048
     Dates: start: 20211005, end: 20211009
  5. AMLODIPINE\VALSARTAN [Concomitant]
     Active Substance: AMLODIPINE\VALSARTAN
     Indication: Hypertension
     Dosage: 1 DF, QD
     Route: 048
     Dates: start: 20210929, end: 20211009
  6. INSULIN ASPART [Concomitant]
     Active Substance: INSULIN ASPART
     Indication: Diabetes mellitus
     Dosage: 26.00UNIT
     Route: 058
     Dates: start: 20211004, end: 20211006
  7. INSULIN ASPART [Concomitant]
     Active Substance: INSULIN ASPART
     Dosage: 18 UNIT
     Route: 058
     Dates: start: 20211004, end: 20211006
  8. NOVORAPID [Concomitant]
     Active Substance: INSULIN ASPART
     Indication: Diabetes mellitus
     Dosage: 10 UNIT ,TID
     Route: 058
     Dates: start: 20210927, end: 20211003
  9. ATORVASTATIN CALCIUM [Concomitant]
     Active Substance: ATORVASTATIN CALCIUM
     Indication: Arteriosclerosis
     Dosage: 20 MG, QD
     Route: 048
     Dates: start: 20210929, end: 20211009

REACTIONS (1)
  - Hypoglycaemia [Recovering/Resolving]

NARRATIVE: CASE EVENT DATE: 20211007
